FAERS Safety Report 7442726-1 (Version None)
Quarter: 2011Q2

REPORT INFORMATION
  Report Type: 
  Country: None (occurrence: None)
  Receive Date: 20110428
  Receipt Date: 20110415
  Transmission Date: 20111010
  Serious: Yes (Hospitalization)
  Sender: FDA-Public Use
  Company Number: SK-WATSON-2011-03040

PATIENT
  Age: 54 Year
  Sex: Female

DRUGS (1)
  1. HEPARIN SODIUM [Suspect]
     Indication: ANTICOAGULANT THERAPY
     Dosage: UNK

REACTIONS (4)
  - PNEUMONIA [None]
  - SEPSIS [None]
  - THROMBOSIS [None]
  - THROMBOCYTOPENIA [None]
